FAERS Safety Report 16007091 (Version 2)
Quarter: 2019Q1

REPORT INFORMATION
  Report Type: Spontaneous
  Country: US (occurrence: US)
  Receive Date: 20190226
  Receipt Date: 20190306
  Transmission Date: 20190418
  Serious: Yes (Hospitalization, Other)
  Sender: FDA-Public Use
  Company Number: PHEH2019US008455

PATIENT
  Sex: Male

DRUGS (1)
  1. TASIGNA [Suspect]
     Active Substance: NILOTINIB
     Indication: CHRONIC MYELOID LEUKAEMIA
     Dosage: 2 DF, BID
     Route: 048
     Dates: start: 201401

REACTIONS (25)
  - Depression [Unknown]
  - Peripheral arterial occlusive disease [Unknown]
  - Vertebral artery stenosis [Unknown]
  - Headache [Unknown]
  - Abdominal pain [Unknown]
  - Cerebrovascular accident [Unknown]
  - Corneal abrasion [Unknown]
  - Cellulitis [Unknown]
  - Fatigue [Unknown]
  - Hepatomegaly [Unknown]
  - Abscess [Unknown]
  - Carotid artery stenosis [Unknown]
  - Foreign body in eye [Unknown]
  - Oedema peripheral [Unknown]
  - Erectile dysfunction [Unknown]
  - Staphylococcal infection [Unknown]
  - Atelectasis [Unknown]
  - Skin mass [Unknown]
  - Sciatica [Unknown]
  - Weight increased [Unknown]
  - Dizziness [Unknown]
  - Asthenia [Unknown]
  - Wound infection [Unknown]
  - Diabetes mellitus [Unknown]
  - Back pain [Unknown]
